FAERS Safety Report 12963739 (Version 1)
Quarter: 2016Q4

REPORT INFORMATION
  Report Type: Spontaneous
  Country: AU (occurrence: AU)
  Receive Date: 20161122
  Receipt Date: 20161122
  Transmission Date: 20170207
  Serious: Yes (Other)
  Sender: FDA-Public Use
  Company Number: AU-ORION CORPORATION ORION PHARMA-TREX2016-1277

PATIENT
  Age: 58 Year
  Sex: Female

DRUGS (8)
  1. TARGIN [Concomitant]
     Active Substance: NALOXONE HYDROCHLORIDE\OXYCODONE HYDROCHLORIDE
     Dosage: 1 AM AND PM
     Route: 065
     Dates: start: 2013
  2. SANDOMIGRAN [Concomitant]
     Active Substance: PIZOTYLINE
     Dosage: AT 4 PM
     Route: 065
     Dates: start: 2013
  3. METHOTREXATE (METHOTREXATE SODIUM) [Suspect]
     Active Substance: METHOTREXATE SODIUM
     Indication: SWELLING
     Dosage: HALF OF 2.5 MG; 1 EVERY SATURDAY
     Route: 065
     Dates: start: 201607, end: 201608
  4. SOMAC [Concomitant]
     Active Substance: PANTOPRAZOLE SODIUM
     Dosage: ONE IN AM
     Route: 065
     Dates: start: 2011
  5. METHOTREXATE (METHOTREXATE SODIUM) [Suspect]
     Active Substance: METHOTREXATE SODIUM
     Indication: PAIN
  6. DEPTRAN [Concomitant]
     Active Substance: DOXEPIN HYDROCHLORIDE
     Dosage: 1 AM AND PM
     Route: 065
     Dates: start: 2007
  7. METHOTREXATE (METHOTREXATE SODIUM) [Suspect]
     Active Substance: METHOTREXATE SODIUM
     Indication: SLE ARTHRITIS
     Dosage: 1 EVERY SATURDAY
     Route: 065
     Dates: start: 201607
  8. MOGADON [Concomitant]
     Active Substance: NITRAZEPAM
     Dosage: TWO AT NIGHT
     Route: 065
     Dates: start: 2015

REACTIONS (6)
  - Visual acuity reduced [Unknown]
  - Product commingling [Unknown]
  - Product quality issue [Unknown]
  - Circumstance or information capable of leading to medication error [Unknown]
  - Incorrect dose administered [Unknown]
  - Product colour issue [Unknown]

NARRATIVE: CASE EVENT DATE: 20160817
